FAERS Safety Report 5399199-2 (Version None)
Quarter: 2007Q3

REPORT INFORMATION
  Report Type: 
  Country: None (occurrence: None)
  Receive Date: 20070727
  Receipt Date: 20070724
  Transmission Date: 20080115
  Serious: Yes (Hospitalization)
  Sender: FDA-Public Use
  Company Number: HQWYE127118JUL07

PATIENT
  Sex: Male
  Weight: 79 kg

DRUGS (11)
  1. TEMSIROLIMUS [Suspect]
     Indication: MANTLE CELL LYMPHOMA
     Route: 042
     Dates: start: 20070706, end: 20070714
  2. VITAMIN B6 [Concomitant]
     Dosage: 200 MG EVERY DAY
     Dates: start: 20070712
  3. POTASSIUM CHLORIDE [Concomitant]
     Indication: ELECTROLYTE IMBALANCE
     Dates: start: 20070713
  4. MUCOSOLVAN [Concomitant]
     Dates: start: 20070713
  5. POTASSIUM CHLORIDE [Concomitant]
     Indication: ELECTROLYTE IMBALANCE
     Dates: start: 20070713, end: 20070715
  6. POTASSIUM CHLORIDE [Concomitant]
     Dates: start: 20070715, end: 20070717
  7. POTASSIUM CHLORIDE [Concomitant]
     Dates: start: 20070717
  8. CALCIUM GLUCONATE [Concomitant]
     Indication: BLOOD CALCIUM DECREASED
     Dosage: UNKNOWN
     Dates: start: 20070713
  9. FAMOTIDINE [Concomitant]
     Dates: start: 20070713
  10. AMINO ACIDS [Concomitant]
     Dosage: 200 MG EVERY DAY
     Dates: start: 20070712
  11. INSULIN [Concomitant]
     Indication: DIABETES MELLITUS
     Dosage: 12U, 3U, 4 U ONCE DAILY
     Dates: start: 20070713

REACTIONS (1)
  - ANGINA PECTORIS [None]
